FAERS Safety Report 10205142 (Version 2)
Quarter: 2014Q2

REPORT INFORMATION
  Report Type: Spontaneous
  Country: US (occurrence: US)
  Receive Date: 20140529
  Receipt Date: 20140529
  Transmission Date: 20141212
  Serious: Yes (Death, Hospitalization)
  Sender: FDA-Public Use
  Company Number: US-JNJFOC-20140500679

PATIENT
  Age: 74 Year
  Sex: Female
  Weight: 59 kg

DRUGS (10)
  1. IMBRUVICA [Suspect]
     Indication: CHRONIC LYMPHOCYTIC LEUKAEMIA
     Route: 048
     Dates: start: 20140326, end: 20140414
  2. PREDNISONE [Concomitant]
  3. XANAX [Concomitant]
  4. CALCIUM [Concomitant]
  5. VIROPTIC [Concomitant]
  6. VALTREX [Concomitant]
  7. NORVASC [Concomitant]
  8. ATENOLOL [Concomitant]
  9. FAMCICLOVIR [Concomitant]
     Dates: start: 2003
  10. IMMUNOGLOBULIN [Concomitant]
     Dates: start: 2003

REACTIONS (6)
  - Pneumonia [Fatal]
  - Septic shock [Fatal]
  - Atrial fibrillation [Unknown]
  - Arthralgia [Unknown]
  - Hyperglycaemia [Unknown]
  - Ophthalmic herpes zoster [Recovered/Resolved]
